FAERS Safety Report 9370939 (Version 1)
Quarter: 2013Q2

REPORT INFORMATION
  Report Type: Spontaneous
  Country: US (occurrence: US)
  Receive Date: 20130627
  Receipt Date: 20130627
  Transmission Date: 20140414
  Serious: Yes (Other)
  Sender: FDA-Public Use
  Company Number: US-AMGEN-USASP2013044495

PATIENT
  Sex: Female

DRUGS (3)
  1. XGEVA [Suspect]
     Indication: METASTASES TO BONE
     Dosage: UNK UNK, Q4WK
     Dates: start: 201306
  2. VITAMIN D                          /00107901/ [Concomitant]
     Dosage: UNK UNK, QD
  3. CALCIUM [Concomitant]
     Dosage: UNK UNK, QD

REACTIONS (5)
  - Activities of daily living impaired [Unknown]
  - Dyspnoea [Recovered/Resolved]
  - Hypoaesthesia [Recovered/Resolved]
  - Sensory loss [Recovered/Resolved]
  - Mobility decreased [Unknown]
